FAERS Safety Report 9473210 (Version 1)
Quarter: 2013Q3

REPORT INFORMATION
  Report Type: Spontaneous
  Country: IT (occurrence: IT)
  Receive Date: 20130823
  Receipt Date: 20130823
  Transmission Date: 20140515
  Serious: Yes (Hospitalization)
  Sender: FDA-Public Use
  Company Number: IT-TEVA-426396ISR

PATIENT
  Age: 45 Year
  Sex: Male

DRUGS (2)
  1. CETIRIZINA [Suspect]
     Indication: ARTHROPOD BITE
     Dosage: 20 GTT DAILY; SOLUTION FOR ORAL DROPS
     Route: 048
     Dates: start: 20130810, end: 20130810
  2. BENTELAN 4MG/2ML [Concomitant]
     Indication: ARTHROPOD BITE
     Dosage: 1 DOSAGE FORMS DAILY; 4MG/2ML
     Route: 030
     Dates: start: 20130810, end: 20130810

REACTIONS (6)
  - Sopor [Recovering/Resolving]
  - Dry mouth [Recovering/Resolving]
  - Speech disorder [Recovering/Resolving]
  - Bradyphrenia [Recovering/Resolving]
  - Paradoxical drug reaction [Recovering/Resolving]
  - Bradykinesia [Recovering/Resolving]
